FAERS Safety Report 6415213-7 (Version None)
Quarter: 2009Q4

REPORT INFORMATION
  Report Type: 
  Country: None (occurrence: None)
  Receive Date: 20091027
  Receipt Date: 20091023
  Transmission Date: 20100525
  Serious: Yes (Other)
  Sender: FDA-Public Use
  Company Number: US-ROXANE LABORATORIES, INC.-2009-RO-01092RO

PATIENT
  Age: 65 Year
  Sex: Male

DRUGS (2)
  1. LITHIUM CARBONATE [Suspect]
     Indication: BIPOLAR I DISORDER
     Dosage: 1200 MG
  2. LITHIUM CARBONATE [Suspect]
     Dosage: 400 MG

REACTIONS (7)
  - AORTIC STENOSIS [None]
  - ATRIAL CONDUCTION TIME PROLONGATION [None]
  - ATRIAL FIBRILLATION [None]
  - BRUGADA SYNDROME [None]
  - SICK SINUS SYNDROME [None]
  - SYNCOPE [None]
  - THERAPEUTIC AGENT TOXICITY [None]
